FAERS Safety Report 12379322 (Version 1)
Quarter: 2016Q2

REPORT INFORMATION
  Report Type: Spontaneous
  Country: US (occurrence: US)
  Receive Date: 20160517
  Receipt Date: 20160517
  Transmission Date: 20160815
  Serious: No
  Sender: FDA-Public Use
  Company Number: US-RELYPSA-RLY2016000263

PATIENT

DRUGS (35)
  1. HYDROXYZINE PAMOATE. [Concomitant]
     Active Substance: HYDROXYZINE PAMOATE
  2. KETOCONAZOLE. [Concomitant]
     Active Substance: KETOCONAZOLE
  3. ZOCOR [Concomitant]
     Active Substance: SIMVASTATIN
  4. NORTRIPTYLINE HCL [Concomitant]
     Active Substance: NORTRIPTYLINE HYDROCHLORIDE
  5. CALCITRATE [Concomitant]
     Active Substance: CALCIUM CITRATE
  6. CALCIUM CARBONATE. [Concomitant]
     Active Substance: CALCIUM CARBONATE
  7. VITAMIN D3 [Concomitant]
     Active Substance: CHOLECALCIFEROL
  8. LOTRISONE [Concomitant]
     Active Substance: BETAMETHASONE DIPROPIONATE\CLOTRIMAZOLE
  9. FERAHEME [Concomitant]
     Active Substance: FERUMOXYTOL NON-STOICHIOMETRIC MAGNETITE
  10. RANEXA [Concomitant]
     Active Substance: RANOLAZINE
  11. CARVEDILOL. [Concomitant]
     Active Substance: CARVEDILOL
  12. LISINOPRIL. [Concomitant]
     Active Substance: LISINOPRIL
  13. MAGNESIUM OXIDE. [Concomitant]
     Active Substance: MAGNESIUM OXIDE
  14. KIONEX [Concomitant]
     Active Substance: SODIUM POLYSTYRENE SULFONATE
  15. GABAPENTIN. [Concomitant]
     Active Substance: GABAPENTIN
  16. CYCLOBENZAPRINE HCL [Concomitant]
     Active Substance: CYCLOBENZAPRINE HYDROCHLORIDE
  17. BUSPIRONE HCL [Concomitant]
     Active Substance: BUSPIRONE HYDROCHLORIDE
  18. ENDOCET [Concomitant]
     Active Substance: ACETAMINOPHEN\OXYCODONE HYDROCHLORIDE
  19. HYDROXYZINE HCL [Concomitant]
     Active Substance: HYDROXYZINE HYDROCHLORIDE
  20. BUMETANIDE. [Concomitant]
     Active Substance: BUMETANIDE
  21. AMOXICILLIN. [Concomitant]
     Active Substance: AMOXICILLIN
  22. FLUOROURACIL. [Concomitant]
     Active Substance: FLUOROURACIL
  23. AZOLE [Concomitant]
     Active Substance: ALBENDAZOLE
  24. VELTASSA [Suspect]
     Active Substance: PATIROMER
     Indication: HYPERKALAEMIA
     Dosage: 8.4 G, QD
     Route: 048
     Dates: start: 20160325
  25. ASPIRIN                            /00002701/ [Concomitant]
     Active Substance: ASPIRIN
  26. LEVOTHYROXINE SODIUM. [Concomitant]
     Active Substance: LEVOTHYROXINE SODIUM
  27. ISOSORBIDE MONONITRATE. [Concomitant]
     Active Substance: ISOSORBIDE MONONITRATE
  28. FENOFIBRATE. [Concomitant]
     Active Substance: FENOFIBRATE
  29. OMEPRAZOLE. [Concomitant]
     Active Substance: OMEPRAZOLE
  30. ALLOPURINOL. [Concomitant]
     Active Substance: ALLOPURINOL
  31. VITAMIN B12 [Concomitant]
     Active Substance: CYANOCOBALAMIN
  32. TRIAMCINOLONE ACETONIDE. [Concomitant]
     Active Substance: TRIAMCINOLONE ACETONIDE
  33. NITROSTAT [Concomitant]
     Active Substance: NITROGLYCERIN
  34. NOVOLIN R [Concomitant]
     Active Substance: INSULIN HUMAN
  35. COLCRYS [Concomitant]
     Active Substance: COLCHICINE

REACTIONS (2)
  - Blood glucose decreased [Unknown]
  - Vomiting [Unknown]
